FAERS Safety Report 9696063 (Version 2)
Quarter: 2013Q4

REPORT INFORMATION
  Report Type: Spontaneous
  Country: US (occurrence: US)
  Receive Date: 20131119
  Receipt Date: 20131217
  Transmission Date: 20140711
  Serious: Yes (Hospitalization)
  Sender: FDA-Public Use
  Company Number: US-GLAXOSMITHKLINE-A1049686A

PATIENT
  Age: 46 Year
  Sex: Female

DRUGS (3)
  1. LAMICTAL [Suspect]
     Indication: EPILEPSY
     Dosage: 3.5TAB PER DAY
     Route: 048
  2. TOPAMAX [Concomitant]
  3. KLONOPIN [Concomitant]

REACTIONS (4)
  - Suicide attempt [Unknown]
  - Convulsion [Not Recovered/Not Resolved]
  - Adverse event [Unknown]
  - Wound [Unknown]
